FAERS Safety Report 4796733-8 (Version None)
Quarter: 2005Q4

REPORT INFORMATION
  Report Type: 
  Country: None (occurrence: None)
  Receive Date: 20051013
  Receipt Date: 20051006
  Transmission Date: 20060501
  Serious: Yes (Death, Hospitalization)
  Sender: FDA-Public Use
  Company Number: 200512250DE

PATIENT
  Age: 62 Year
  Sex: Male
  Weight: 103 kg

DRUGS (5)
  1. ARAVA [Suspect]
     Indication: PSORIATIC ARTHROPATHY
     Route: 048
     Dates: start: 20030401, end: 20031016
  2. CELEBREX [Suspect]
     Indication: PSORIATIC ARTHROPATHY
     Route: 048
     Dates: start: 20021124, end: 20031001
  3. PREDNISOLONE [Suspect]
     Route: 048
  4. METHOTREXATE [Concomitant]
     Dates: start: 20020201, end: 20030901
  5. MORPHINE [Concomitant]
     Indication: PSORIATIC ARTHROPATHY

REACTIONS (13)
  - APHTHOUS STOMATITIS [None]
  - CANDIDIASIS [None]
  - CHOLESTASIS [None]
  - CIRCULATORY COLLAPSE [None]
  - DECUBITUS ULCER [None]
  - DRUG HYPERSENSITIVITY [None]
  - DRUG TOXICITY [None]
  - HEPATIC FAILURE [None]
  - PROCEDURAL COMPLICATION [None]
  - RENAL FAILURE [None]
  - SEPSIS [None]
  - TACHYCARDIA [None]
  - TREATMENT NONCOMPLIANCE [None]
